FAERS Safety Report 8042880-7 (Version None)
Quarter: 2012Q1

REPORT INFORMATION
  Report Type: 
  Country: None (occurrence: None)
  Receive Date: 20120112
  Receipt Date: 20120105
  Transmission Date: 20120608
  Serious: Yes (Other)
  Sender: FDA-Public Use
  Company Number: IE-JNJFOC-20120102063

PATIENT
  Sex: Female

DRUGS (1)
  1. STELARA [Suspect]
     Indication: GUTTATE PSORIASIS
     Route: 058
     Dates: start: 20110324

REACTIONS (1)
  - PHARYNGITIS [None]
